FAERS Safety Report 25854757 (Version 1)
Quarter: 2025Q3

REPORT INFORMATION
  Report Type: Spontaneous
  Country: EU (occurrence: EU)
  Receive Date: 20250927
  Receipt Date: 20250927
  Transmission Date: 20251021
  Serious: Yes (Hospitalization)
  Sender: SANOFI AVENTIS
  Company Number: EU-SA-2025SA286638

PATIENT
  Age: 80 Year
  Sex: Female

DRUGS (1)
  1. DUPIXENT [Suspect]
     Active Substance: DUPILUMAB
     Indication: Nasal polyps

REACTIONS (4)
  - Pyrexia [Unknown]
  - Myalgia [Unknown]
  - Eosinophil count increased [Unknown]
  - Arthralgia [Unknown]
